FAERS Safety Report 14565444 (Version 1)
Quarter: 2018Q1

REPORT INFORMATION
  Report Type: Report from Study
  Country: None (occurrence: DE)
  Receive Date: 20180223
  Receipt Date: 20180223
  Transmission Date: 20180509
  Serious: Yes (Hospitalization)
  Sender: FDA-Public Use
  Company Number: DE-ABBVIE-18K-062-2261869-00

PATIENT
  Age: 43 Year
  Sex: Female
  Weight: 75 kg

DRUGS (2)
  1. HUMIRA [Suspect]
     Active Substance: ADALIMUMAB
     Indication: PSORIASIS
     Route: 058
     Dates: start: 20160523
  2. HUMIRA [Suspect]
     Active Substance: ADALIMUMAB
     Indication: PSORIASIS
     Route: 058

REACTIONS (3)
  - Musculoskeletal pain [Not Recovered/Not Resolved]
  - Osteoarthritis [Unknown]
  - Muscle tightness [Unknown]

NARRATIVE: CASE EVENT DATE: 201705
